FAERS Safety Report 15744918 (Version 1)
Quarter: 2018Q4

REPORT INFORMATION
  Report Type: Spontaneous
  Country: US (occurrence: US)
  Receive Date: 20181205
  Receipt Date: 20181205
  Transmission Date: 20190205
  Serious: No
  Sender: FDA-Public Use
  Company Number: None

PATIENT
  Age: 44 Year
  Sex: Female

DRUGS (2)
  1. CREATING BETTER DAYS PEACH POPS TANGY ORANGE 50MG CBD INFUSED [Suspect]
     Active Substance: CANNABIDIOL\HERBALS
     Indication: PAIN
     Route: 048
     Dates: start: 20181130, end: 20181130
  2. CREATING BETTER DAYS PEACH POPS TANGY ORANGE 50MG CBD INFUSED [Suspect]
     Active Substance: CANNABIDIOL\HERBALS
     Indication: ANXIETY
     Route: 048
     Dates: start: 20181130, end: 20181130

REACTIONS (5)
  - Gastrooesophageal reflux disease [None]
  - Anxiety [None]
  - Dyspepsia [None]
  - Pain [None]
  - Condition aggravated [None]
